FAERS Safety Report 6635407-5 (Version None)
Quarter: 2010Q1

REPORT INFORMATION
  Report Type: 
  Country: None (occurrence: None)
  Receive Date: 20100315
  Receipt Date: 20090416
  Transmission Date: 20100710
  Serious: No
  Sender: FDA-Public Use
  Company Number: US-ABBOTT-09P-163-0568714-00

PATIENT
  Sex: Female
  Weight: 59.02 kg

DRUGS (4)
  1. DEPAKOTE [Suspect]
     Indication: SWELLING
     Route: 048
     Dates: start: 20040101
  2. DEPAKOTE [Suspect]
     Dates: end: 20090201
  3. METFORMIN HCL [Concomitant]
     Indication: DIABETES MELLITUS
  4. GLYBURIDE [Concomitant]
     Indication: DIABETES MELLITUS

REACTIONS (1)
  - ALOPECIA [None]
